FAERS Safety Report 7316378-5 (Version None)
Quarter: 2011Q1

REPORT INFORMATION
  Report Type: 
  Country: None (occurrence: None)
  Receive Date: 20110225
  Receipt Date: 20110211
  Transmission Date: 20110831
  Serious: Yes (Other)
  Sender: FDA-Public Use
  Company Number: US-CELGENEUS-163-21880-10122533

PATIENT
  Sex: Male
  Weight: 74.2 kg

DRUGS (1)
  1. REVLIMID [Suspect]
     Indication: MULTIPLE MYELOMA
     Route: 048
     Dates: start: 20080521

REACTIONS (3)
  - CONTUSION [None]
  - SQUAMOUS CELL CARCINOMA [None]
  - WHITE BLOOD CELL COUNT DECREASED [None]
